FAERS Safety Report 11759585 (Version 1)
Quarter: 2015Q4

REPORT INFORMATION
  Report Type: Spontaneous
  Country: US (occurrence: US)
  Receive Date: 20151120
  Receipt Date: 20151120
  Transmission Date: 20160304
  Serious: No
  Sender: FDA-Public Use
  Company Number: US-JNJFOC-20151015004

PATIENT
  Sex: Male
  Weight: 70.31 kg

DRUGS (2)
  1. MENS ROGAINE EXTRA STRENGTH [Suspect]
     Active Substance: MINOXIDIL
     Indication: ALOPECIA
     Dosage: FOR A WEEK
     Route: 061
  2. MENS ROGAINE EXTRA STRENGTH [Suspect]
     Active Substance: MINOXIDIL
     Indication: ALOPECIA
     Dosage: 1/2 CAP
     Route: 061

REACTIONS (9)
  - Erythema [Recovering/Resolving]
  - Skin disorder [Recovering/Resolving]
  - Rash [Recovering/Resolving]
  - Scab [Recovering/Resolving]
  - Skin exfoliation [Recovering/Resolving]
  - Scratch [Recovering/Resolving]
  - Application site irritation [Recovering/Resolving]
  - Acne [Recovering/Resolving]
  - Inappropriate schedule of drug administration [Unknown]
